FAERS Safety Report 12493632 (Version 4)
Quarter: 2016Q4

REPORT INFORMATION
  Report Type: Spontaneous
  Country: US (occurrence: US)
  Receive Date: 20160623
  Receipt Date: 20161116
  Transmission Date: 20170207
  Serious: No
  Sender: FDA-Public Use
  Company Number: US-GLAXOSMITHKLINE-US2016084613

PATIENT
  Sex: Female

DRUGS (1)
  1. TANZEUM [Suspect]
     Active Substance: ALBIGLUTIDE
     Indication: PRODUCT USED FOR UNKNOWN INDICATION
     Dosage: 50 MG, UNK
     Route: 058

REACTIONS (6)
  - Product quality issue [Unknown]
  - Extra dose administered [Unknown]
  - Drug ineffective [Unknown]
  - Product reconstitution issue [Unknown]
  - Blood glucose increased [Unknown]
  - Drug dose omission [Unknown]
